FAERS Safety Report 4441153-9 (Version None)
Quarter: 2004Q3

REPORT INFORMATION
  Report Type: 
  Country: None (occurrence: None)
  Receive Date: 20040728
  Receipt Date: 20040525
  Transmission Date: 20050211
  Serious: No
  Sender: FDA-Public Use
  Company Number: USA040567793

PATIENT
  Age: 12 Year
  Sex: Female
  Weight: 42 kg

DRUGS (2)
  1. STRATTERA [Suspect]
     Dosage: 60 MG DAY
     Dates: start: 20030701
  2. ALLEGRA [Concomitant]

REACTIONS (2)
  - MICTURITION URGENCY [None]
  - URINARY RETENTION [None]
